FAERS Safety Report 25601642 (Version 2)
Quarter: 2025Q4

REPORT INFORMATION
  Report Type: Report from Study
  Country: US (occurrence: US)
  Receive Date: 20250724
  Receipt Date: 20251109
  Transmission Date: 20260118
  Serious: Yes (Hospitalization)
  Sender: ABBVIE
  Company Number: US-ABBVIE-6382068

PATIENT
  Age: 63 Year
  Sex: Male

DRUGS (2)
  1. SKYRIZI [Suspect]
     Active Substance: RISANKIZUMAB-RZAA
     Indication: Psoriasis
     Route: 058
     Dates: start: 20250401
  2. COVID-19 vaccine [Concomitant]
     Indication: COVID-19 immunisation

REACTIONS (6)
  - Ulcer [Unknown]
  - Immunodeficiency [Unknown]
  - Wound [Unknown]
  - Diabetes mellitus [Unknown]
  - Psoriasis [Unknown]
  - Wound complication [Unknown]

NARRATIVE: CASE EVENT DATE: 20250101
